FAERS Safety Report 10028975 (Version 1)
Quarter: 2014Q1

REPORT INFORMATION
  Report Type: Spontaneous
  Country: US (occurrence: US)
  Receive Date: 20140321
  Receipt Date: 20140321
  Transmission Date: 20141002
  Serious: Yes (Hospitalization)
  Sender: FDA-Public Use
  Company Number: US-ABBVIE-14P-163-1213447-00

PATIENT
  Age: 73 Year
  Sex: Female
  Weight: 83.99 kg

DRUGS (2)
  1. DEPAKOTE ER [Suspect]
     Indication: CONVULSION
     Route: 048
     Dates: end: 201402
  2. DIVALPROEX SODIUM [Suspect]
     Indication: CONVULSION
     Route: 048
     Dates: start: 201402

REACTIONS (2)
  - Myocardial infarction [Recovering/Resolving]
  - Medication residue present [Not Recovered/Not Resolved]
